FAERS Safety Report 11030555 (Version 1)
Quarter: 2015Q2

REPORT INFORMATION
  Report Type: Spontaneous
  Country: US (occurrence: US)
  Receive Date: 20150415
  Receipt Date: 20150415
  Transmission Date: 20150821
  Serious: Yes (Hospitalization)
  Sender: FDA-Public Use
  Company Number: US-UNITED THERAPEUTICS-UNT-2015-004069

PATIENT
  Sex: Male

DRUGS (2)
  1. ORENITRAM [Suspect]
     Active Substance: TREPROSTINIL
     Indication: PULMONARY HYPERTENSION
     Dosage: 1 TAB, TID
     Route: 048
     Dates: start: 20150303
  2. ORENITRAM [Suspect]
     Active Substance: TREPROSTINIL
     Dosage: 2 TAB, TID
     Route: 048
     Dates: start: 20150303

REACTIONS (3)
  - Oedema peripheral [Unknown]
  - International normalised ratio increased [Unknown]
  - Localised oedema [Unknown]

NARRATIVE: CASE EVENT DATE: 20150406
